FAERS Safety Report 13144570 (Version 1)
Quarter: 2017Q1

REPORT INFORMATION
  Report Type: Spontaneous
  Country: CA (occurrence: CA)
  Receive Date: 20170124
  Receipt Date: 20170124
  Transmission Date: 20170428
  Serious: Yes (Other)
  Sender: FDA-Public Use
  Company Number: CA-TEVA-732281ACC

PATIENT
  Age: 56 Year
  Sex: Female

DRUGS (4)
  1. TEVA-CLINDAMYCIN [Suspect]
     Active Substance: CLINDAMYCIN PHOSPHATE
     Dosage: 4 DOSAGE FORMS DAILY;
  2. WHEY [Concomitant]
     Active Substance: WHEY
  3. TEVA-CLINDAMYCIN [Suspect]
     Active Substance: CLINDAMYCIN PHOSPHATE
     Indication: TOOTH INFECTION
     Dosage: 3 DOSAGE FORMS DAILY;
  4. ARTICHOKE POWDER [Concomitant]

REACTIONS (3)
  - Clostridium difficile infection [Not Recovered/Not Resolved]
  - Vision blurred [Not Recovered/Not Resolved]
  - Photopsia [Not Recovered/Not Resolved]
